FAERS Safety Report 17964528 (Version 3)
Quarter: 2020Q4

REPORT INFORMATION
  Report Type: Spontaneous
  Country: US (occurrence: US)
  Receive Date: 20200630
  Receipt Date: 20201109
  Transmission Date: 20210113
  Serious: Yes (Other)
  Sender: FDA-Public Use
  Company Number: US-SA-2020SA165993

PATIENT

DRUGS (11)
  1. SPRINTEC [Concomitant]
     Active Substance: ETHINYL ESTRADIOL\NORGESTIMATE
  2. CLARITIN [Concomitant]
     Active Substance: LORATADINE
  3. EPINEPHRINE. [Concomitant]
     Active Substance: EPINEPHRINE
  4. PROAIR HFA [Concomitant]
     Active Substance: ALBUTEROL SULFATE
  5. TYLENOL [Concomitant]
     Active Substance: ACETAMINOPHEN
  6. FABRAZYME [Suspect]
     Active Substance: AGALSIDASE BETA
     Indication: FABRY^S DISEASE
     Dosage: 120 MG, QOW
     Route: 042
     Dates: start: 20171114
  7. LORATADINE. [Concomitant]
     Active Substance: LORATADINE
  8. ACETAMINOPHEN. [Concomitant]
     Active Substance: ACETAMINOPHEN
  9. STERILE WATER [Concomitant]
     Active Substance: WATER
  10. FABRAZYME [Suspect]
     Active Substance: AGALSIDASE BETA
     Dosage: 120 MG, QOW
     Route: 042
     Dates: start: 20200817, end: 20201103
  11. NORMAL SALINE [Concomitant]
     Active Substance: SODIUM CHLORIDE

REACTIONS (2)
  - Kidney infection [Unknown]
  - Product dose omission in error [Unknown]

NARRATIVE: CASE EVENT DATE: 20201104
